FAERS Safety Report 8552901-0 (Version None)
Quarter: 2012Q3

REPORT INFORMATION
  Report Type: 
  Country: None (occurrence: None)
  Receive Date: 20120723
  Receipt Date: 20120723
  Transmission Date: 20120928
  Serious: No
  Sender: FDA-Public Use
  Company Number: None

PATIENT
  Sex: Male

DRUGS (4)
  1. PROZAC [Suspect]
     Indication: ANXIETY
     Dosage: PROZAC 20MG 111 QHS #90
     Dates: start: 19921101, end: 20000701
  2. PROZAC [Suspect]
     Indication: HYPOCHONDRIASIS
     Dosage: PROZAC 20MG 111 QHS #90
     Dates: start: 19921101, end: 20000701
  3. PROZAC [Suspect]
     Indication: OBSESSIVE-COMPULSIVE DISORDER
     Dosage: PROZAC 20MG 111 QHS #90
     Dates: start: 19921101, end: 20000701
  4. PROZAC [Suspect]
     Indication: IMPATIENCE
     Dosage: PROZAC 20MG 111 QHS #90
     Dates: start: 19921101, end: 20000701

REACTIONS (1)
  - DRUG INEFFECTIVE [None]
